FAERS Safety Report 10357783 (Version 1)
Quarter: 2014Q3

REPORT INFORMATION
  Report Type: Spontaneous
  Country: US (occurrence: None)
  Receive Date: 20140730
  Receipt Date: 20140730
  Transmission Date: 20150326
  Serious: Yes (Disabling, Other)
  Sender: FDA-Public Use
  Company Number: None

PATIENT
  Age: 25 Year
  Sex: Female
  Weight: 53.52 kg

DRUGS (1)
  1. CIPROFLAXIN [Suspect]
     Active Substance: CIPROFLOXACIN
     Indication: GASTROENTERITIS SALMONELLA
     Dosage: 2 PILLULES, TAKEN BY MOUTH
     Dates: start: 20130415, end: 20130419

REACTIONS (19)
  - Hormone level abnormal [None]
  - Palpitations [None]
  - Constipation [None]
  - Burning sensation [None]
  - Visual impairment [None]
  - Menstruation irregular [None]
  - Hypoaesthesia [None]
  - Vitreous floaters [None]
  - Tremor [None]
  - Fatigue [None]
  - Nausea [None]
  - Anxiety [None]
  - Depersonalisation [None]
  - Diarrhoea [None]
  - Depression [None]
  - Paraesthesia [None]
  - Migraine [None]
  - Impaired work ability [None]
  - Asthenia [None]

NARRATIVE: CASE EVENT DATE: 20130415
